FAERS Safety Report 12548119 (Version 1)
Quarter: 2016Q3

REPORT INFORMATION
  Report Type: Spontaneous
  Country: US (occurrence: None)
  Receive Date: 20160711
  Receipt Date: 20160711
  Transmission Date: 20161109
  Serious: Yes (Hospitalization, Disabling)
  Sender: FDA-Public Use
  Company Number: None

PATIENT
  Age: 63 Year
  Sex: Male
  Weight: 99.79 kg

DRUGS (2)
  1. LOVENOX [Suspect]
     Active Substance: ENOXAPARIN SODIUM
  2. ENOXAPARIN [Suspect]
     Active Substance: ENOXAPARIN

REACTIONS (2)
  - Shock [None]
  - Post procedural haemorrhage [None]

NARRATIVE: CASE EVENT DATE: 20141121
